FAERS Safety Report 16343694 (Version 6)
Quarter: 2021Q1

REPORT INFORMATION
  Report Type: Spontaneous
  Country: US (occurrence: US)
  Receive Date: 20190522
  Receipt Date: 20210104
  Transmission Date: 20210419
  Serious: Yes (Other)
  Sender: FDA-Public Use
  Company Number: US-PFIZER INC-2019214376

PATIENT
  Age: 61 Year
  Sex: Female

DRUGS (3)
  1. PREMPRO [Suspect]
     Active Substance: ESTROGENS, CONJUGATED\MEDROXYPROGESTERONE ACETATE
     Indication: OSTEOPOROSIS
     Dosage: UNK
  2. DEPAKOTE ER [Concomitant]
     Active Substance: DIVALPROEX SODIUM
     Indication: EPILEPSY
     Dosage: 500 MG, 3X/DAY
  3. PREMPRO [Suspect]
     Active Substance: ESTROGENS, CONJUGATED\MEDROXYPROGESTERONE ACETATE
     Indication: OSTEOPENIA
     Dosage: UNK, 1X/DAY (0.45 MG/1.5 MG)
     Route: 048

REACTIONS (4)
  - Anxiety [Unknown]
  - Angiopathy [Unknown]
  - Compression fracture [Unknown]
  - Peripheral vascular disorder [Unknown]
